FAERS Safety Report 19818542 (Version 1)
Quarter: 2021Q3

REPORT INFORMATION
  Report Type: Spontaneous
  Country: US (occurrence: US)
  Receive Date: 20210911
  Receipt Date: 20210911
  Transmission Date: 20211014
  Serious: No
  Sender: FDA-Public Use
  Company Number: US-PERSON AND COVEY-2118281

PATIENT
  Age: 52 Year
  Sex: Female
  Weight: 67.73 kg

DRUGS (1)
  1. SOLBAR FIFTY SPF50 [Suspect]
     Active Substance: AVOBENZONE\OCTINOXATE\OCTOCRYLENE\OXYBENZONE
     Indication: TANNING
     Route: 061
     Dates: start: 20210629, end: 20210630

REACTIONS (1)
  - Dyspnoea [Unknown]

NARRATIVE: CASE EVENT DATE: 20210629
